FAERS Safety Report 9160899 (Version 3)
Quarter: 2013Q2

REPORT INFORMATION
  Report Type: Spontaneous
  Country: US (occurrence: US)
  Receive Date: 20130313
  Receipt Date: 20130628
  Transmission Date: 20140414
  Serious: Yes (Hospitalization, Other)
  Sender: FDA-Public Use
  Company Number: US-PFIZER INC-2013079378

PATIENT
  Age: 47 Year
  Sex: Female
  Weight: 58 kg

DRUGS (3)
  1. LYRICA [Suspect]
     Indication: NECK PAIN
     Dosage: 150 MG, 1X/DAY
     Route: 048
     Dates: start: 20130226, end: 201302
  2. LYRICA [Suspect]
     Dosage: 150 MG, 2X/DAY
     Route: 048
     Dates: start: 201302, end: 20130302
  3. OXYCODONE [Concomitant]
     Dosage: UNK

REACTIONS (21)
  - Enteritis [Not Recovered/Not Resolved]
  - Inflammation [Not Recovered/Not Resolved]
  - Abdominal pain lower [Not Recovered/Not Resolved]
  - Coma [Unknown]
  - Renal disorder [Unknown]
  - Oedema peripheral [Unknown]
  - Abdominal distension [Unknown]
  - Cold sweat [Unknown]
  - Gait disturbance [Recovered/Resolved]
  - Speech disorder [Recovered/Resolved]
  - Eye disorder [Recovered/Resolved]
  - Eyelid disorder [Recovered/Resolved]
  - Amnesia [Unknown]
  - Confusional state [Recovered/Resolved]
  - Vomiting [Recovered/Resolved]
  - Headache [Not Recovered/Not Resolved]
  - Staring [Unknown]
  - White blood cell count increased [Unknown]
  - Hypertension [Unknown]
  - Heart rate decreased [Unknown]
  - Memory impairment [Unknown]
